FAERS Safety Report 4552458-5 (Version None)
Quarter: 2005Q1

REPORT INFORMATION
  Report Type: 
  Country: None (occurrence: None)
  Receive Date: 20050114
  Receipt Date: 20040602
  Transmission Date: 20050727
  Serious: No
  Sender: FDA-Public Use
  Company Number: US-BRISTOL-MYERS SQUIBB COMPANY-12603155

PATIENT
  Age: 52 Year
  Sex: Female
  Weight: 82 kg

DRUGS (4)
  1. PLATINOL [Suspect]
     Indication: LUNG NEOPLASM MALIGNANT
     Dosage: DAYS 1 AND 8 INITIAL DOSE: MAR-2003
     Route: 042
     Dates: start: 20040504, end: 20040504
  2. DECADRON [Concomitant]
     Indication: PREMEDICATION
     Route: 048
  3. EMEND [Concomitant]
     Indication: PREMEDICATION
     Route: 048
  4. ANZEMET [Concomitant]
     Indication: PREMEDICATION
     Route: 048

REACTIONS (1)
  - VERTIGO [None]
